FAERS Safety Report 14317334 (Version 7)
Quarter: 2019Q2

REPORT INFORMATION
  Report Type: Report from Study
  Country: DE (occurrence: DE)
  Receive Date: 20171222
  Receipt Date: 20190429
  Transmission Date: 20190711
  Serious: Yes (Other)
  Sender: FDA-Public Use
  Company Number: DE-MYLANLABS-2017M1080560

PATIENT
  Age: 63 Year
  Sex: Male
  Weight: 80 kg

DRUGS (7)
  1. EPLERENONE. [Suspect]
     Active Substance: EPLERENONE
     Indication: CARDIAC FAILURE
     Dosage: 25 MILLIGRAM, QD
     Route: 065
     Dates: start: 2012, end: 20170721
  2. CLOPIDOGREL [Concomitant]
     Active Substance: CLOPIDOGREL BISULFATE
     Indication: PRODUCT USED FOR UNKNOWN INDICATION
     Dosage: 75 MG, QD
     Route: 048
  3. METOHEXAL [Concomitant]
     Active Substance: METOPROLOL
     Indication: PRODUCT USED FOR UNKNOWN INDICATION
     Dosage: 47.5 MILLIGRAM, QD
     Route: 048
  4. ENTRESTO [Suspect]
     Active Substance: SACUBITRIL\VALSARTAN
     Indication: CARDIAC FAILURE
     Dosage: 2 DOSAGE FORM, QD (1 DF 50MG (SACUBITRIL 24 MG AND VALSARTAN 26 MG), QD)
     Route: 048
     Dates: start: 20160526, end: 20160607
  5. ENTRESTO [Suspect]
     Active Substance: SACUBITRIL\VALSARTAN
     Indication: CARDIAC FAILURE CHRONIC
     Dosage: 200 MILLIGRAM, QD (100 MG (SACUBITRIL 49 MG AND VALSARTAN 51 MG), BID)
     Route: 048
     Dates: start: 20160608, end: 20180222
  6. ENTRESTO [Suspect]
     Active Substance: SACUBITRIL\VALSARTAN
     Dosage: 400 MILLIGRAM, QD (200 MG (SACUBITRIL 97 MG AND VALSARTAN 103 MG), BID)
     Route: 048
     Dates: start: 20170223
  7. ASPIRIN. [Concomitant]
     Active Substance: ASPIRIN
     Indication: PRODUCT USED FOR UNKNOWN INDICATION
     Dosage: 100 MILLIGRAM, QD
     Route: 048

REACTIONS (6)
  - Hyperkalaemia [Not Recovered/Not Resolved]
  - Blood potassium increased [Unknown]
  - Product prescribing error [Unknown]
  - Coronary artery disease [Recovering/Resolving]
  - Concomitant disease aggravated [Recovering/Resolving]
  - Inappropriate schedule of product administration [Unknown]

NARRATIVE: CASE EVENT DATE: 20160526
